FAERS Safety Report 4783658-7 (Version None)
Quarter: 2005Q3

REPORT INFORMATION
  Report Type: 
  Country: None (occurrence: None)
  Receive Date: 20050928
  Receipt Date: 20050921
  Transmission Date: 20060218
  Serious: No
  Sender: FDA-Public Use
  Company Number: 05H-048-0302600-00

PATIENT

DRUGS (3)
  1. HEPARIN SODIUM [Suspect]
     Indication: ANTICOAGULANT THERAPY
     Dosage: 5000 UNIT, ONCE, INTRAVENOUS BOLUS
     Route: 040
  2. HEPARIN SODIUM [Suspect]
     Indication: ANTICOAGULANT THERAPY
     Dosage: CONTINUOUS INFUSION, INTRAVENOUS
     Route: 042
  3. WARFARIN SODIUM [Suspect]
     Indication: ANTICOAGULANT THERAPY

REACTIONS (1)
  - PULMONARY EMBOLISM [None]
